FAERS Safety Report 25997059 (Version 1)
Quarter: 2025Q4

REPORT INFORMATION
  Report Type: Spontaneous
  Country: US (occurrence: None)
  Receive Date: 20251104
  Receipt Date: 20251104
  Transmission Date: 20260117
  Serious: Yes (Life-Threatening, Hospitalization)
  Sender: FDA-CTU
  Company Number: None

PATIENT
  Age: 3 Year
  Sex: Female
  Weight: 18 kg

DRUGS (1)
  1. ASPARLAS [Suspect]
     Active Substance: CALASPARGASE PEGOL-MKNL
     Indication: T-cell type acute leukaemia
     Dosage: 1950 KIU KILO INTERNATIONAL UNIT(S) (1000S)  PER PROTOCOL INTRAVENOUS
     Route: 042
     Dates: start: 20250719, end: 20251027

REACTIONS (17)
  - Neuropathy peripheral [None]
  - Pancreatitis [None]
  - Hypovolaemic shock [None]
  - Cardiac arrest [None]
  - Vomiting [None]
  - Nausea [None]
  - Food intolerance [None]
  - Hypotension [None]
  - Respiratory distress [None]
  - Unresponsive to stimuli [None]
  - Pulseless electrical activity [None]
  - Pancytopenia [None]
  - Hyperkalaemia [None]
  - Acute kidney injury [None]
  - Pancreatic pseudocyst [None]
  - Haemorrhage [None]
  - Toxicity to various agents [None]

NARRATIVE: CASE EVENT DATE: 20251027
